FAERS Safety Report 4328170-4 (Version None)
Quarter: 2004Q1

REPORT INFORMATION
  Report Type: 
  Country: None (occurrence: None)
  Receive Date: 20040325
  Receipt Date: 20040310
  Transmission Date: 20041129
  Serious: Yes (Other)
  Sender: FDA-Public Use
  Company Number: 700797

PATIENT
  Age: 65 Year
  Sex: Male

DRUGS (1)
  1. AMEVIVE [Suspect]
     Indication: PSORIASIS
     Dosage: 15 MG QW IM
     Route: 030
     Dates: start: 20030101, end: 20030624

REACTIONS (3)
  - B-CELL LYMPHOMA STAGE I [None]
  - MALIGNANT NEOPLASM OF EYE [None]
  - NERVE COMPRESSION [None]
